FAERS Safety Report 4840532-5 (Version None)
Quarter: 2005Q4

REPORT INFORMATION
  Report Type: 
  Country: None (occurrence: None)
  Receive Date: 20051130
  Receipt Date: 20050922
  Transmission Date: 20060501
  Serious: Yes (Other)
  Sender: FDA-Public Use
  Company Number: US-BRISTOL-MYERS SQUIBB COMPANY-13119615

PATIENT
  Age: 40 Year
  Sex: Female

DRUGS (8)
  1. ERBITUX [Suspect]
     Indication: TONSIL CANCER
     Dosage: 31-MAY-05: 600 MG. ALSO GIVEN 16-AUG + 24-AUG-05.
     Route: 042
     Dates: start: 20050816, end: 20050816
  2. ERBITUX [Suspect]
     Indication: TONGUE NEOPLASM MALIGNANT STAGE UNSPECIFIED
     Dosage: 31-MAY-05: 600 MG. ALSO GIVEN 16-AUG + 24-AUG-05.
     Route: 042
     Dates: start: 20050816, end: 20050816
  3. ZOFRAN [Concomitant]
  4. DECADRON [Concomitant]
  5. BENADRYL [Concomitant]
  6. MSIR [Concomitant]
  7. REGLAN [Concomitant]
  8. PROZAC [Concomitant]

REACTIONS (1)
  - DERMATITIS ACNEIFORM [None]
